FAERS Safety Report 13518943 (Version 1)
Quarter: 2017Q2

REPORT INFORMATION
  Report Type: Spontaneous
  Country: KR (occurrence: KR)
  Receive Date: 20170505
  Receipt Date: 20170505
  Transmission Date: 20170830
  Serious: Yes (Death)
  Sender: FDA-Public Use
  Company Number: KR-HQ SPECIALTY-KR-2017INT000158

PATIENT
  Age: 38 Year
  Sex: Female

DRUGS (4)
  1. PACLITAXEL. [Suspect]
     Active Substance: PACLITAXEL
     Indication: ANGIOSARCOMA METASTATIC
     Dosage: 80 MG/M2, OVER 1 HOUR ON DAYS 1, 8, AND 15 EVERY 4 WEEKS
     Route: 042
  2. DEXAMETHASONE. [Concomitant]
     Active Substance: DEXAMETHASONE
     Indication: PREMEDICATION
     Dosage: 20 MG,  ON DAYS 1, 8, AND 15 EVERY 4 WEEKS
     Route: 042
  3. CHLORPHENIRAMINE                   /00072501/ [Concomitant]
     Active Substance: CHLORPHENIRAMINE
     Indication: PREMEDICATION
     Dosage: 4 MG,  ON DAYS 1, 8, AND 15 EVERY 4 WEEKS
     Route: 042
  4. RANITIDINE. [Concomitant]
     Active Substance: RANITIDINE
     Indication: PREMEDICATION
     Dosage: 50 MG, ON DAYS 1, 8, AND 15 EVERY 4 WEEKS
     Route: 042

REACTIONS (1)
  - Pulmonary embolism [Fatal]
